FAERS Safety Report 5222799-7 (Version None)
Quarter: 2007Q1

REPORT INFORMATION
  Report Type: 
  Country: None (occurrence: None)
  Receive Date: 20070129
  Receipt Date: 20070126
  Transmission Date: 20070707
  Serious: Yes (Disabling)
  Sender: FDA-Public Use
  Company Number: US-GLAXOSMITHKLINE-A0637210A

PATIENT
  Sex: Female

DRUGS (4)
  1. LAMICTAL [Suspect]
     Indication: BIPOLAR DISORDER
     Dosage: 25MG ALTERNATE DAYS
     Route: 048
     Dates: start: 20061107, end: 20061114
  2. DEPAKOTE [Concomitant]
  3. LEXAPRO [Concomitant]
  4. SYNTHROID [Concomitant]

REACTIONS (2)
  - DYSPHAGIA [None]
  - LYMPHADENOPATHY [None]
